FAERS Safety Report 9823221 (Version 5)
Quarter: 2014Q2

REPORT INFORMATION
  Report Type: Spontaneous
  Country: US (occurrence: US)
  Receive Date: 20140116
  Receipt Date: 20140616
  Transmission Date: 20141212
  Serious: Yes (Hospitalization, Disabling, Other)
  Sender: FDA-Public Use
  Company Number: US-009507513-1401USA002068

PATIENT
  Sex: Female
  Weight: 49.89 kg

DRUGS (2)
  1. FOSAMAX [Suspect]
     Indication: OSTEOPOROSIS
     Dosage: 70 MG, QW
     Route: 048
     Dates: start: 200510, end: 201009
  2. ALENDRONATE SODIUM [Suspect]
     Dosage: 70 MG, QW
     Route: 048
     Dates: start: 20090716, end: 20100911

REACTIONS (43)
  - Jaw operation [Unknown]
  - Gallbladder pain [Unknown]
  - Cholecystectomy [Unknown]
  - Pulmonary embolism [Unknown]
  - Bacteraemia [Unknown]
  - Renal failure acute [Unknown]
  - Urosepsis [Unknown]
  - Thrombocytosis [Unknown]
  - Hypoacusis [Unknown]
  - Osteonecrosis of jaw [Not Recovered/Not Resolved]
  - Oesophageal obstruction [Unknown]
  - Dental caries [Unknown]
  - Osteopenia [Unknown]
  - Tooth fracture [Unknown]
  - Dental plaque [Unknown]
  - Jaw operation [Recovered/Resolved]
  - Nervous system disorder [Unknown]
  - Feeling abnormal [Unknown]
  - Cataract operation [Unknown]
  - Strabismus correction [Unknown]
  - Hypertension [Unknown]
  - Abdominal operation [Unknown]
  - Hypokalaemia [Unknown]
  - Exposed bone in jaw [Unknown]
  - Radiotherapy [Unknown]
  - Debridement [Not Recovered/Not Resolved]
  - Wound drainage [Unknown]
  - Infection [Unknown]
  - Soft tissue disorder [Unknown]
  - Dehydration [Unknown]
  - Anaemia [Unknown]
  - Paraesthesia oral [Not Recovered/Not Resolved]
  - Hypoaesthesia oral [Not Recovered/Not Resolved]
  - Venous thrombosis [Unknown]
  - Depression [Unknown]
  - Osteoradionecrosis [Unknown]
  - Device failure [Unknown]
  - Lymphadenopathy [Unknown]
  - Osteitis [Unknown]
  - Cellulitis [Unknown]
  - Osteomyelitis [Unknown]
  - Oedema peripheral [Unknown]
  - Abdominal discomfort [Unknown]
